FAERS Safety Report 15718873 (Version 1)
Quarter: 2018Q4

REPORT INFORMATION
  Report Type: Spontaneous
  Country: US (occurrence: US)
  Receive Date: 20181213
  Receipt Date: 20181213
  Transmission Date: 20190205
  Serious: Yes (Death)
  Sender: FDA-Public Use
  Company Number: None

PATIENT
  Age: 65 Year
  Sex: Female

DRUGS (14)
  1. CALCIUM 500MG WITH VITAMIN D [Concomitant]
     Dates: start: 20180828, end: 20181202
  2. GABAPENTIN 300MG [Concomitant]
     Active Substance: GABAPENTIN
     Dates: start: 20180828, end: 20181202
  3. GLIPIZIDE 10MG [Concomitant]
     Dates: start: 20180828, end: 20181202
  4. PIOGLITAZONE  30MG [Concomitant]
     Active Substance: PIOGLITAZONE
     Dates: start: 20180828, end: 20181202
  5. CLOPIDOGREL [Concomitant]
     Active Substance: CLOPIDOGREL BISULFATE
     Dates: start: 20180828, end: 20181202
  6. FUROSDEMIDE 20MG [Concomitant]
     Dates: start: 20180828, end: 20181202
  7. LETROZOLE 2.5MG [Concomitant]
     Active Substance: LETROZOLE
     Dates: start: 20180828, end: 20181202
  8. GLIPIZIDE 5MG [Concomitant]
     Active Substance: GLIPIZIDE
     Dates: start: 20180828, end: 20181202
  9. SIMVASTATIN 40MG [Concomitant]
     Active Substance: SIMVASTATIN
     Dates: start: 20180828, end: 20181202
  10. ASPIRIN 81MG [Concomitant]
     Active Substance: ASPIRIN
     Dates: start: 20180828, end: 20181202
  11. FERROUS GLUCONATE 324MG [Concomitant]
     Dates: start: 20180828, end: 20181202
  12. OMEPRAZOLE 40MG [Concomitant]
     Active Substance: OMEPRAZOLE
     Dates: start: 20180828, end: 20181202
  13. METOPROLOL SUCCINATE ER 25MG [Concomitant]
     Dates: start: 20180828, end: 20181202
  14. IBRANCE [Suspect]
     Active Substance: PALBOCICLIB
     Indication: BREAST CANCER
     Route: 048
     Dates: start: 20180829, end: 20181202

REACTIONS (1)
  - Death [None]

NARRATIVE: CASE EVENT DATE: 20181202
